FAERS Safety Report 7541664-3 (Version None)
Quarter: 2011Q2

REPORT INFORMATION
  Report Type: 
  Country: None (occurrence: None)
  Receive Date: 20110603
  Receipt Date: 20110414
  Transmission Date: 20111010
  Serious: Yes (Hospitalization)
  Sender: FDA-Public Use
  Company Number: KR-005159

PATIENT
  Sex: Male
  Weight: 64 kg

DRUGS (3)
  1. DEGARELIX (DEGARELIX) (240 MG, 80 MG) [Suspect]
     Indication: PROSTATE CANCER
     Dosage: (240 MG TOTAL SUBCUTANEOUS), (80 MG 1X/MONTH SUBCUTANEOUS)
     Route: 058
     Dates: start: 20110314, end: 20110314
  2. DEGARELIX (DEGARELIX) (240 MG, 80 MG) [Suspect]
     Indication: PROSTATE CANCER
     Dosage: (240 MG TOTAL SUBCUTANEOUS), (80 MG 1X/MONTH SUBCUTANEOUS)
     Route: 058
     Dates: start: 20110411
  3. TAMSULOSIN HCL [Concomitant]

REACTIONS (7)
  - DYSURIA [None]
  - HAEMATURIA [None]
  - PELVIC PAIN [None]
  - URINARY RETENTION [None]
  - METASTASES TO BONE [None]
  - METASTASES TO LUNG [None]
  - METASTASES TO PLEURA [None]
